FAERS Safety Report 5226220-4 (Version None)
Quarter: 2007Q1

REPORT INFORMATION
  Report Type: 
  Country: None (occurrence: None)
  Receive Date: 20070129
  Receipt Date: 20070118
  Transmission Date: 20070707
  Serious: Yes (Other)
  Sender: FDA-Public Use
  Company Number: 2006SP008059

PATIENT
  Age: 55 Year
  Sex: Female
  Weight: 60 kg

DRUGS (5)
  1. BETAMETHASONE [Suspect]
     Indication: ASTHMA
     Dosage: 4 MG; QD; PO;  2 MG; QD; PO
     Route: 048
     Dates: start: 20061120, end: 20061127
  2. BETAMETHASONE [Suspect]
     Indication: ASTHMA
     Dosage: 4 MG; QD; PO;  2 MG; QD; PO
     Route: 048
     Dates: start: 20061128, end: 20061205
  3. FORADIL (CON.) [Concomitant]
  4. VENTOLINE (CON.) [Concomitant]
  5. DEXTROPROPOXYPHENE, PARACETAMOL (CON.) [Concomitant]

REACTIONS (7)
  - ALANINE AMINOTRANSFERASE INCREASED [None]
  - BLOOD ALKALINE PHOSPHATASE INCREASED [None]
  - CALCULUS BLADDER [None]
  - CHOLELITHIASIS [None]
  - GAMMA-GLUTAMYLTRANSFERASE INCREASED [None]
  - MALAISE [None]
  - TRANSAMINASES INCREASED [None]
